FAERS Safety Report 15294973 (Version 1)
Quarter: 2018Q3

REPORT INFORMATION
  Report Type: Spontaneous
  Country: US (occurrence: US)
  Receive Date: 20180807
  Receipt Date: 20180807
  Transmission Date: 20181010
  Serious: Yes (Hospitalization)
  Sender: FDA-Public Use
  Company Number: None

PATIENT
  Sex: Male

DRUGS (15)
  1. CEFUROXIME. [Concomitant]
     Active Substance: CEFUROXIME
  2. OXYCODONE [Concomitant]
     Active Substance: OXYCODONE
  3. TOUJEO SOLO INJ [Concomitant]
  4. ESCITALOPRAM [Concomitant]
     Active Substance: ESCITALOPRAM OXALATE
  5. WELCHOL [Concomitant]
     Active Substance: COLESEVELAM HYDROCHLORIDE
  6. DILAUDID [Concomitant]
     Active Substance: HYDROMORPHONE HYDROCHLORIDE
  7. RAMIPRIL. [Concomitant]
     Active Substance: RAMIPRIL
  8. ZETIA [Concomitant]
     Active Substance: EZETIMIBE
  9. ENBREL [Suspect]
     Active Substance: ETANERCEPT
     Indication: RHEUMATOID ARTHRITIS
     Route: 058
     Dates: start: 20170524
  10. NOVOLOG [Concomitant]
     Active Substance: INSULIN ASPART
  11. VITAMIN D [Concomitant]
     Active Substance: CHOLECALCIFEROL
  12. CYCLOBENZAPR [Concomitant]
     Active Substance: CYCLOBENZAPRINE
  13. FENOFIBRATE. [Concomitant]
     Active Substance: FENOFIBRATE
  14. MAGNESIUM [Concomitant]
     Active Substance: MAGNESIUM
  15. PHENYTOIN. [Concomitant]
     Active Substance: PHENYTOIN

REACTIONS (1)
  - Lower limb fracture [None]
